FAERS Safety Report 8030617-7 (Version None)
Quarter: 2012Q1

REPORT INFORMATION
  Report Type: 
  Country: None (occurrence: None)
  Receive Date: 20120109
  Receipt Date: 20120104
  Transmission Date: 20120608
  Serious: Yes (Hospitalization)
  Sender: FDA-Public Use
  Company Number: NL-JNJFOC-20120101133

PATIENT
  Age: 44 Year
  Sex: Female

DRUGS (13)
  1. CYCLOPHOSPHAMIDE [Suspect]
     Indication: BREAST CANCER
     Route: 042
  2. OXAZEPAM [Concomitant]
     Route: 065
  3. NORTRIPTYLINE HCL [Concomitant]
     Route: 065
  4. LITHIUM [Concomitant]
     Route: 065
  5. CYCLOPHOSPHAMIDE [Suspect]
     Route: 042
     Dates: start: 20111104
  6. DOCETAXEL [Suspect]
     Route: 042
     Dates: start: 20111104
  7. DEXAMETHASONE [Concomitant]
     Route: 065
  8. DOCETAXEL [Suspect]
     Indication: BREAST CANCER
     Route: 042
  9. METFORMIN HCL [Concomitant]
     Route: 065
  10. DOXORUBICIN HCL [Suspect]
     Route: 042
     Dates: start: 20111104
  11. NEULASTA [Suspect]
     Indication: PROPHYLAXIS
     Route: 065
  12. DOXORUBICIN HCL [Suspect]
     Indication: BREAST CANCER
     Route: 042
  13. CONTRACEPTIVE [Concomitant]
     Route: 065

REACTIONS (1)
  - EMOTIONAL DISORDER [None]
